FAERS Safety Report 25328528 (Version 1)
Quarter: 2025Q2

REPORT INFORMATION
  Report Type: Spontaneous
  Country: SE (occurrence: SE)
  Receive Date: 20250519
  Receipt Date: 20250519
  Transmission Date: 20250717
  Serious: Yes (Other)
  Sender: TEVA
  Company Number: SE-TEVA-VS-3330883

PATIENT
  Age: 69 Year
  Sex: Female

DRUGS (1)
  1. ALENDRONAT [Suspect]
     Active Substance: ALENDRONATE SODIUM
     Indication: Product used for unknown indication
     Dosage: EVA WEEKLY TABLET
     Route: 065
     Dates: end: 20241202

REACTIONS (1)
  - Cholesteatoma [Unknown]

NARRATIVE: CASE EVENT DATE: 20230101
